FAERS Safety Report 6173006-2 (Version None)
Quarter: 2009Q2

REPORT INFORMATION
  Report Type: 
  Country: None (occurrence: None)
  Receive Date: 20090430
  Receipt Date: 20090423
  Transmission Date: 20091009
  Serious: Yes (Death)
  Sender: FDA-Public Use
  Company Number: US-CELGENEUS-163-21880-09042063

PATIENT
  Sex: Male

DRUGS (3)
  1. REVLIMID [Suspect]
     Route: 048
     Dates: start: 20080123, end: 20081001
  2. REVLIMID [Suspect]
     Route: 048
     Dates: start: 20071030
  3. REVLIMID [Suspect]
     Route: 048
     Dates: start: 20071015, end: 20071030

REACTIONS (1)
  - CEREBROVASCULAR ACCIDENT [None]
